FAERS Safety Report 6396478-7 (Version None)
Quarter: 2009Q4

REPORT INFORMATION
  Report Type: 
  Country: None (occurrence: None)
  Receive Date: 20091012
  Receipt Date: 20091006
  Transmission Date: 20100525
  Serious: Yes (Other)
  Sender: FDA-Public Use
  Company Number: US-BAYER-200935508NA

PATIENT
  Sex: Female

DRUGS (5)
  1. AVELOX [Suspect]
     Indication: DRUG USE FOR UNKNOWN INDICATION
     Dates: start: 20091002, end: 20091004
  2. BENADRYL [Concomitant]
  3. ALAVERT [Concomitant]
  4. KEFLEX [Concomitant]
  5. STEROID [Concomitant]
     Indication: BACK PAIN

REACTIONS (10)
  - ANAPHYLACTIC REACTION [None]
  - DISORIENTATION [None]
  - DYSPHAGIA [None]
  - DYSPNOEA [None]
  - HEADACHE [None]
  - HYPERSENSITIVITY [None]
  - RASH MACULAR [None]
  - SWELLING FACE [None]
  - TREMOR [None]
  - VERTIGO [None]
